FAERS Safety Report 23361306 (Version 2)
Quarter: 2024Q1

REPORT INFORMATION
  Report Type: Spontaneous
  Country: US (occurrence: US)
  Receive Date: 20240103
  Receipt Date: 20240328
  Transmission Date: 20240410
  Serious: Yes (Other)
  Sender: FDA-Public Use
  Company Number: US-INCYTE CORPORATION-2023IN004658

PATIENT

DRUGS (1)
  1. JAKAFI [Suspect]
     Active Substance: RUXOLITINIB
     Indication: Polycythaemia vera
     Dosage: 20 MILLIGRAM, BID
     Route: 048

REACTIONS (10)
  - Squamous cell carcinoma of skin [Unknown]
  - COVID-19 [Unknown]
  - Fatigue [Unknown]
  - Cough [Unknown]
  - Rib fracture [Not Recovered/Not Resolved]
  - Sciatica [Unknown]
  - Intervertebral disc degeneration [Unknown]
  - Peripheral swelling [Unknown]
  - Contusion [Unknown]
  - Weight increased [Unknown]

NARRATIVE: CASE EVENT DATE: 20230301
